FAERS Safety Report 5235460-X (Version None)
Quarter: 2007Q1

REPORT INFORMATION
  Report Type: 
  Country: None (occurrence: None)
  Receive Date: 20070209
  Receipt Date: 20070209
  Transmission Date: 20070707
  Serious: No
  Sender: FDA-Public Use
  Company Number: None

PATIENT

DRUGS (2)
  1. PRIMIDONE [Suspect]
     Dosage: TABLET  VIAL, DISPENSING UNKNOWN
  2. MYSOLINE [Suspect]
     Dosage: TABLET  VIAL, DISPENSING UNKNOWN

REACTIONS (8)
  - ANOREXIA [None]
  - BALANCE DISORDER [None]
  - DRUG DISPENSING ERROR [None]
  - GAIT DISTURBANCE [None]
  - HYPERSOMNIA [None]
  - INCORRECT DOSE ADMINISTERED [None]
  - MEDICATION ERROR [None]
  - SOMNOLENCE [None]
